FAERS Safety Report 7565779-9 (Version None)
Quarter: 2011Q2

REPORT INFORMATION
  Report Type: 
  Country: None (occurrence: None)
  Receive Date: 20110623
  Receipt Date: 20110621
  Transmission Date: 20111010
  Serious: Yes (Other)
  Sender: FDA-Public Use
  Company Number: US-AMGEN-USASP2010009028

PATIENT
  Sex: Female

DRUGS (1)
  1. ENBREL [Suspect]
     Indication: RHEUMATOID ARTHRITIS
     Dosage: 25 MG, 2 TIMES/WK
     Dates: start: 19981101

REACTIONS (7)
  - MALAISE [None]
  - OROPHARYNGEAL PAIN [None]
  - DISABILITY [None]
  - FOOT DEFORMITY [None]
  - PAIN [None]
  - CATARACT [None]
  - ARTHRITIS [None]
